FAERS Safety Report 9210919 (Version 1)
Quarter: 2013Q2

REPORT INFORMATION
  Report Type: Spontaneous
  Country: DE (occurrence: DE)
  Receive Date: 20130404
  Receipt Date: 20130404
  Transmission Date: 20140414
  Serious: Yes (Other)
  Sender: FDA-Public Use
  Company Number: PHHY2013DE031414

PATIENT
  Age: 73 Year
  Sex: Male

DRUGS (3)
  1. 5-FLUOROURACIL [Suspect]
     Indication: OESOPHAGEAL CARCINOMA
     Dosage: 1000 MG/M2, DAILY
  2. CISPLATINUM [Concomitant]
     Dosage: 60 MG/M2, DAY 1
  3. BISOPROLOL [Concomitant]

REACTIONS (8)
  - Myocardial ischaemia [Recovered/Resolved]
  - Angina pectoris [Recovered/Resolved]
  - Chest pain [Recovered/Resolved]
  - Cardiotoxicity [Recovered/Resolved]
  - Ventricular extrasystoles [Recovered/Resolved]
  - Atrial fibrillation [Recovered/Resolved]
  - Tachycardia [Recovered/Resolved]
  - Electrocardiogram ST segment elevation [Recovered/Resolved]
